FAERS Safety Report 8217202-9 (Version None)
Quarter: 2012Q1

REPORT INFORMATION
  Report Type: 
  Country: None (occurrence: None)
  Receive Date: 20120319
  Receipt Date: 20120307
  Transmission Date: 20120608
  Serious: Yes (Life-Threatening, Hospitalization)
  Sender: FDA-Public Use
  Company Number: FR-BRISTOL-MYERS SQUIBB COMPANY-16442469

PATIENT
  Age: 84 Year
  Sex: Male

DRUGS (6)
  1. MEDIATENSYL [Concomitant]
     Dosage: BEFORE JUN 2005. FORM: CAPS
     Route: 048
     Dates: start: 20050101
  2. PRAVASTATIN SODIUM [Concomitant]
     Route: 048
     Dates: start: 20100101
  3. NICARDIPINE HYDROCHLORIDE [Concomitant]
     Dosage: EXTENDED RELEASE CAPSULE
     Dates: start: 20080701
  4. PERINDOPRIL ERBUMINE [Concomitant]
     Dosage: FORM: FILM-COATED TABLET
     Route: 048
     Dates: start: 20100101
  5. FUROSEMIDE [Concomitant]
     Route: 048
     Dates: start: 20051101
  6. COUMADIN [Suspect]
     Dosage: BEFORE JUN 2005. INTERRUPTED ON 26JAN12, GIVEN AGAIN ON 31JAN12
     Route: 048
     Dates: start: 20050101

REACTIONS (4)
  - GASTRIC ULCER HAEMORRHAGE [None]
  - RENAL FAILURE ACUTE [None]
  - HAEMORRHAGIC ANAEMIA [None]
  - GRAND MAL CONVULSION [None]
